FAERS Safety Report 8518806-6 (Version None)
Quarter: 2012Q3

REPORT INFORMATION
  Report Type: 
  Country: None (occurrence: None)
  Receive Date: 20120718
  Receipt Date: 20120713
  Transmission Date: 20120928
  Serious: Yes (Death, Other)
  Sender: FDA-Public Use
  Company Number: PHHY2012MW026878

PATIENT
  Sex: Male

DRUGS (2)
  1. IMATINIB MESYLATE [Suspect]
     Indication: CHRONIC MYELOID LEUKAEMIA
     Dosage: 400 MG, DAILY
     Route: 048
     Dates: start: 20090119
  2. IMATINIB MESYLATE [Suspect]
     Dosage: UNK
     Dates: start: 20110124, end: 20120701

REACTIONS (3)
  - DEATH [None]
  - CHRONIC MYELOID LEUKAEMIA TRANSFORMATION [None]
  - DRUG RESISTANCE [None]
